FAERS Safety Report 11740972 (Version 1)
Quarter: 2015Q4

REPORT INFORMATION
  Report Type: Report from Study
  Country: FR (occurrence: FR)
  Receive Date: 20151115
  Receipt Date: 20151115
  Transmission Date: 20160304
  Serious: Yes (Life-Threatening, Hospitalization)
  Sender: FDA-Public Use
  Company Number: PHHO2015FR008801

PATIENT
  Age: 66 Year
  Sex: Female

DRUGS (2)
  1. NEORAL [Suspect]
     Active Substance: CYCLOSPORINE
     Indication: RENAL TRANSPLANT
     Dosage: 80 MG, BID
     Route: 065
     Dates: start: 20150222
  2. CERTICAN [Suspect]
     Active Substance: EVEROLIMUS
     Indication: RENAL TRANSPLANT
     Dosage: 0.75 MG, BID
     Route: 048
     Dates: start: 20150222

REACTIONS (6)
  - Bacterial pyelonephritis [Unknown]
  - Anaemia [Not Recovered/Not Resolved]
  - Acute pulmonary oedema [Recovered/Resolved]
  - Bacterial pyelonephritis [Recovered/Resolved]
  - Bacterial sepsis [Unknown]
  - Arteriovenous graft site haematoma [Not Recovered/Not Resolved]

NARRATIVE: CASE EVENT DATE: 20150309
